FAERS Safety Report 4866366-3 (Version None)
Quarter: 2005Q4

REPORT INFORMATION
  Report Type: 
  Country: None (occurrence: None)
  Receive Date: 20051227
  Receipt Date: 20050914
  Transmission Date: 20060501
  Serious: Yes (Hospitalization, Disabling)
  Sender: FDA-Public Use
  Company Number: US-MERCK-0509USA02108

PATIENT
  Age: 67 Year
  Sex: Male
  Weight: 82 kg

DRUGS (4)
  1. VIOXX [Suspect]
     Indication: ARTHRITIS
     Route: 048
     Dates: start: 20000701, end: 20040901
  2. VIOXX [Suspect]
     Route: 048
     Dates: start: 20000701, end: 20040901
  3. ASPIRIN [Concomitant]
     Route: 065
     Dates: start: 20030101
  4. TOPROL-XL [Concomitant]
     Route: 065
     Dates: start: 20040101

REACTIONS (12)
  - ABDOMINAL DISTENSION [None]
  - ABDOMINAL PAIN [None]
  - ABDOMINAL RIGIDITY [None]
  - ACUTE CORONARY SYNDROME [None]
  - ACUTE MYOCARDIAL INFARCTION [None]
  - ANAEMIA POSTOPERATIVE [None]
  - ANGINA PECTORIS [None]
  - ARTHRALGIA [None]
  - CORONARY ARTERY DISEASE [None]
  - EJECTION FRACTION DECREASED [None]
  - EPIGASTRIC DISCOMFORT [None]
  - HYPOACUSIS [None]
